FAERS Safety Report 5677425-X (Version None)
Quarter: 2008Q1

REPORT INFORMATION
  Report Type: 
  Country: None (occurrence: None)
  Receive Date: 20080324
  Receipt Date: 20080318
  Transmission Date: 20080703
  Serious: Yes (Other)
  Sender: FDA-Public Use
  Company Number: GB-JNJFOC-20080304309

PATIENT
  Age: 55 Year
  Sex: Male

DRUGS (6)
  1. REOPRO [Suspect]
     Dosage: FOR 12 HR
     Route: 042
  2. REOPRO [Suspect]
     Indication: ARTERIOGRAM CORONARY
     Route: 042
  3. HEPARIN [Concomitant]
  4. HEPARIN [Concomitant]
     Indication: MYOCARDIAL INFARCTION
  5. CLOPIDOGREL [Concomitant]
     Indication: MYOCARDIAL INFARCTION
  6. ASPIRIN [Concomitant]
     Indication: MYOCARDIAL INFARCTION

REACTIONS (5)
  - ATRIOVENTRICULAR BLOCK COMPLETE [None]
  - HYPOTENSION [None]
  - MYOCARDIAL RUPTURE [None]
  - OLIGURIA [None]
  - PULMONARY OEDEMA [None]
